FAERS Safety Report 4784964-2 (Version None)
Quarter: 2005Q3

REPORT INFORMATION
  Report Type: 
  Country: None (occurrence: None)
  Receive Date: 20050928
  Receipt Date: 20050909
  Transmission Date: 20060218
  Serious: Yes (Hospitalization)
  Sender: FDA-Public Use
  Company Number: USA0507102470

PATIENT
  Age: 42 Year
  Sex: Male
  Weight: 126 kg

DRUGS (3)
  1. CYMBALTA [Suspect]
     Indication: DEPRESSION
     Dosage: 120 MG
     Dates: start: 20050512, end: 20050625
  2. ATIVAN [Concomitant]
  3. WELLBUTRIN [Concomitant]

REACTIONS (4)
  - AMNESIA [None]
  - GUN SHOT WOUND [None]
  - PERONEAL NERVE PALSY [None]
  - SUICIDE ATTEMPT [None]
